FAERS Safety Report 7006433-1 (Version None)
Quarter: 2010Q3

REPORT INFORMATION
  Report Type: 
  Country: None (occurrence: None)
  Receive Date: 20100921
  Receipt Date: 20100913
  Transmission Date: 20110219
  Serious: Yes (Other)
  Sender: FDA-Public Use
  Company Number: US-AMGEN-KDL438172

PATIENT
  Sex: Female

DRUGS (2)
  1. ENBREL [Suspect]
     Indication: RHEUMATOID ARTHRITIS
     Route: 058
     Dates: start: 20000101, end: 20100823
  2. METHOTREXATE [Concomitant]
     Route: 048

REACTIONS (8)
  - ARTHRALGIA [None]
  - BLOOD VISCOSITY INCREASED [None]
  - COUGH [None]
  - HYPOTHYROIDISM [None]
  - INCREASED UPPER AIRWAY SECRETION [None]
  - JOINT SWELLING [None]
  - NAUSEA [None]
  - UPPER RESPIRATORY TRACT INFECTION [None]
